FAERS Safety Report 7527441 (Version 3)
Quarter: 2014Q2

REPORT INFORMATION
  Report Type: Spontaneous
  Country: ES (occurrence: ES)
  Receive Date: 20100804
  Receipt Date: 20140430
  Transmission Date: 20141212
  Serious: Yes (Other)
  Sender: FDA-Public Use
  Company Number: ES-ROCHE-718015

PATIENT
  Age: 34 Year
  Sex: Female

DRUGS (2)
  1. XENICAL [Suspect]
     Indication: OBESITY
     Route: 048
     Dates: start: 200912, end: 20100401
  2. DOXYCYCLINE HYCLATE [Suspect]
     Indication: PRODUCT USED FOR UNKNOWN INDICATION
     Dosage: DRUG: PRODERMA
     Route: 048
     Dates: start: 201003, end: 20100401

REACTIONS (4)
  - Macrocytosis [Recovered/Resolved]
  - Bicytopenia [Recovered/Resolved]
  - Spontaneous haematoma [Recovered/Resolved]
  - Thrombocytopenia [Recovered/Resolved]
